FAERS Safety Report 17973909 (Version 1)
Quarter: 2020Q3

REPORT INFORMATION
  Report Type: Spontaneous
  Country: US (occurrence: US)
  Receive Date: 20200702
  Receipt Date: 20200702
  Transmission Date: 20201103
  Serious: No
  Sender: FDA-Public Use
  Company Number: US-JNJFOC-20200615316

PATIENT
  Sex: Male
  Weight: 81.27 kg

DRUGS (2)
  1. INVEGA [Suspect]
     Active Substance: PALIPERIDONE
     Indication: SCHIZOPHRENIA
     Route: 048
  2. METFORMIN [Concomitant]
     Active Substance: METFORMIN HYDROCHLORIDE

REACTIONS (5)
  - Cold-stimulus headache [Unknown]
  - Sluggishness [Unknown]
  - Amnesia [Unknown]
  - Weight decreased [Unknown]
  - Decreased appetite [Unknown]
